FAERS Safety Report 12580077 (Version 1)
Quarter: 2016Q3

REPORT INFORMATION
  Report Type: Spontaneous
  Country: US (occurrence: US)
  Receive Date: 20160721
  Receipt Date: 20160721
  Transmission Date: 20161109
  Serious: Yes (Other)
  Sender: FDA-Public Use
  Company Number: US-BECTON DICKINSON-2016BDN00342

PATIENT
  Age: 1 Day
  Sex: Female
  Weight: .61 kg

DRUGS (4)
  1. CHLORHEXIDINE [Suspect]
     Active Substance: CHLORHEXIDINE
     Indication: ANTIBIOTIC PROPHYLAXIS
     Dosage: APPLIED TO THE UMBILICAL STUMP
     Route: 061
  2. MAGNESIUM SULFATE. [Concomitant]
     Active Substance: MAGNESIUM SULFATE
     Route: 064
  3. BETAMETHASONE. [Concomitant]
     Active Substance: BETAMETHASONE
     Route: 064
  4. SURFACTANT [Concomitant]
     Route: 007

REACTIONS (6)
  - Ecchymosis [Unknown]
  - Secretion discharge [None]
  - Scar [None]
  - Catheter site haemorrhage [None]
  - Chemical burn of skin [Not Recovered/Not Resolved]
  - Erythema [Recovering/Resolving]
